FAERS Safety Report 4516446-7 (Version None)
Quarter: 2004Q4

REPORT INFORMATION
  Report Type: 
  Country: None (occurrence: None)
  Receive Date: 20041202
  Receipt Date: 20040803
  Transmission Date: 20050328
  Serious: No
  Sender: FDA-Public Use
  Company Number: US-GLAXOSMITHKLINE-A0520750A

PATIENT
  Age: 37 Year
  Sex: Male
  Weight: 177.3 kg

DRUGS (2)
  1. AUGMENTIN '125' [Suspect]
     Indication: CELLULITIS
     Dosage: 2000MG TWICE PER DAY
     Route: 048
     Dates: start: 20040720, end: 20040803
  2. NO CONCURRENT MEDICATION [Concomitant]

REACTIONS (2)
  - PHOTOSENSITIVITY REACTION [None]
  - RASH [None]
